FAERS Safety Report 9057781 (Version 1)
Quarter: 2013Q1

REPORT INFORMATION
  Report Type: Spontaneous
  Country: US (occurrence: None)
  Receive Date: 20130204
  Receipt Date: 20130204
  Transmission Date: 20140127
  Serious: Yes (Death)
  Sender: FDA-Public Use
  Company Number: None

PATIENT
  Age: 44 Year
  Sex: Male

DRUGS (1)
  1. REVLIMID [Suspect]

REACTIONS (5)
  - Listeria encephalitis [None]
  - Ventricular hypertrophy [None]
  - Brain injury [None]
  - Cardiac hypertrophy [None]
  - Gastrointestinal oedema [None]
